FAERS Safety Report 25929881 (Version 3)
Quarter: 2025Q4

REPORT INFORMATION
  Report Type: Spontaneous
  Country: JP (occurrence: JP)
  Receive Date: 20251016
  Receipt Date: 20251106
  Transmission Date: 20260117
  Serious: Yes (Death, Hospitalization, Other)
  Sender: PFIZER
  Company Number: JP-GENMAB-2025-03043

PATIENT
  Age: 5 Decade
  Sex: Female

DRUGS (5)
  1. TIVDAK [Suspect]
     Active Substance: TISOTUMAB VEDOTIN-TFTV
     Indication: Cervix carcinoma
     Dosage: 2 MILLIGRAM/KILOGRAM
     Route: 042
     Dates: start: 20250919, end: 20250919
  2. METFORMIN HYDROCHLORIDE [Suspect]
     Active Substance: METFORMIN HYDROCHLORIDE
     Indication: Type 2 diabetes mellitus
     Dosage: 750 MG, 1X/DAY
     Dates: start: 20250130, end: 2025
  3. PEMBROLIZUMAB [Suspect]
     Active Substance: PEMBROLIZUMAB
     Indication: Cervix carcinoma
     Dosage: UNK, ADMINISTERED FOR 10 CYCLES, TREATMENT WITH PEM (ICI)
     Dates: start: 20250131, end: 2025
  4. BRIMONIDINE TARTRATE [Concomitant]
     Active Substance: BRIMONIDINE TARTRATE
     Indication: Eye disorder prophylaxis
     Dosage: UNK, EYE DROP
     Dates: start: 20250919
  5. LOXOPROFEN SODIUM DIHYDRATE [Concomitant]
     Active Substance: LOXOPROFEN SODIUM DIHYDRATE
     Dosage: UNK
     Dates: start: 20251005, end: 202510

REACTIONS (6)
  - Small intestinal haemorrhage [Fatal]
  - Ketoacidosis [Recovering/Resolving]
  - Stress ulcer [Unknown]
  - Malignant neoplasm progression [Unknown]
  - Cervix carcinoma [Unknown]
  - Gastroenteritis [Unknown]

NARRATIVE: CASE EVENT DATE: 20250101
